FAERS Safety Report 21260454 (Version 1)
Quarter: 2022Q3

REPORT INFORMATION
  Report Type: Spontaneous
  Country: US (occurrence: US)
  Receive Date: 20220826
  Receipt Date: 20220826
  Transmission Date: 20221027
  Serious: Yes (Life-Threatening, Hospitalization, Other)
  Sender: FDA-Public Use
  Company Number: US-INDIVIOR EUROPE LIMITED-INDV-135607-2022

PATIENT
  Age: 57 Year
  Sex: Female

DRUGS (4)
  1. BUPRENORPHINE\NALOXONE [Suspect]
     Active Substance: BUPRENORPHINE\NALOXONE
     Indication: Substance use disorder
     Dosage: UNK
     Route: 065
  2. CLONIDINE [Concomitant]
     Active Substance: CLONIDINE
     Indication: Product used for unknown indication
     Dosage: UNK
     Route: 065
  3. PAROXETINE [Concomitant]
     Active Substance: PAROXETINE
     Indication: Product used for unknown indication
     Dosage: UNK
     Route: 065
  4. ALBUTEROL\IPRATROPIUM [Concomitant]
     Active Substance: ALBUTEROL\IPRATROPIUM
     Indication: Product used for unknown indication
     Dosage: UNK

REACTIONS (8)
  - Sepsis [Recovered/Resolved]
  - Small intestinal obstruction [Recovered/Resolved]
  - Gastrointestinal perforation [Recovered/Resolved]
  - Pelvic abscess [Recovered/Resolved]
  - Drug abuse [Unknown]
  - Chronic obstructive pulmonary disease [Unknown]
  - Malnutrition [Unknown]
  - Large intestinal obstruction [Unknown]
